FAERS Safety Report 15451286 (Version 2)
Quarter: 2018Q4

REPORT INFORMATION
  Report Type: Spontaneous
  Country: US (occurrence: US)
  Receive Date: 20181001
  Receipt Date: 20181123
  Transmission Date: 20190204
  Serious: No
  Sender: FDA-Public Use
  Company Number: PHHY2018US112258

PATIENT
  Sex: Female

DRUGS (1)
  1. SYSTANE LUBRICANT [Suspect]
     Active Substance: POLYETHYLENE GLYCOL 400\PROPYLENE GLYCOL
     Indication: PRODUCT USED FOR UNKNOWN INDICATION
     Dosage: UNK
     Route: 047
     Dates: start: 201809, end: 20180927

REACTIONS (2)
  - Glassy eyes [Recovered/Resolved]
  - Product quality issue [Unknown]

NARRATIVE: CASE EVENT DATE: 201809
